FAERS Safety Report 16704855 (Version 1)
Quarter: 2019Q3

REPORT INFORMATION
  Report Type: Report from Study
  Country: PA (occurrence: PA)
  Receive Date: 20190814
  Receipt Date: 20190814
  Transmission Date: 20191004
  Serious: Yes (Other)
  Sender: FDA-Public Use
  Company Number: PHHY2019PA189913

PATIENT
  Age: 56 Year
  Sex: Male

DRUGS (1)
  1. EXFORGE HCT [Suspect]
     Active Substance: AMLODIPINE BESYLATE\HYDROCHLOROTHIAZIDE\VALSARTAN
     Indication: PRODUCT USED FOR UNKNOWN INDICATION
     Dosage: UNK (5 MG AMLODIPINE, 12.5 MG HYDROCHLORTHIAZIDE, 160 MG VALSARTAN)
     Route: 065

REACTIONS (3)
  - Limb discomfort [Unknown]
  - Diabetes mellitus [Unknown]
  - Gait disturbance [Unknown]
